FAERS Safety Report 8437341-7 (Version None)
Quarter: 2012Q2

REPORT INFORMATION
  Report Type: 
  Country: None (occurrence: None)
  Receive Date: 20120614
  Receipt Date: 20120604
  Transmission Date: 20120825
  Serious: No
  Sender: FDA-Public Use
  Company Number: US-TEVA-341803USA

PATIENT
  Age: 46 Year
  Sex: Female

DRUGS (8)
  1. FLEXERIL [Concomitant]
     Indication: MUSCLE RELAXANT THERAPY
  2. GABAPENTIN [Concomitant]
     Indication: NEUROPATHY PERIPHERAL
  3. ZOLOFT [Concomitant]
     Indication: DEPRESSION
  4. COPAXONE [Suspect]
     Indication: MULTIPLE SCLEROSIS
     Dosage: 20 MILLIGRAM;
     Route: 058
     Dates: start: 20040701
  5. TIZANIDINE HYDROCHLORIDE [Concomitant]
     Indication: MUSCLE SPASMS
  6. AMBIEN [Concomitant]
     Indication: INSOMNIA
  7. BIOTIN [Concomitant]
     Indication: ALOPECIA
  8. ACYCLOVIR [Concomitant]
     Indication: HERPES ZOSTER

REACTIONS (5)
  - NEURALGIA [None]
  - MALAISE [None]
  - ABDOMINAL DISCOMFORT [None]
  - ALOPECIA [None]
  - HERPES ZOSTER [None]
